FAERS Safety Report 5035104-6 (Version None)
Quarter: 2006Q2

REPORT INFORMATION
  Report Type: 
  Country: None (occurrence: None)
  Receive Date: 20060627
  Receipt Date: 20060620
  Transmission Date: 20061013
  Serious: Yes (Hospitalization)
  Sender: FDA-Public Use
  Company Number: JP-AVENTIS-200611908JP

PATIENT
  Age: 75 Year
  Sex: Female
  Weight: 44 kg

DRUGS (9)
  1. TAXOTERE [Suspect]
     Indication: URETHRAL CANCER
     Route: 041
     Dates: start: 20060116, end: 20060116
  2. TAXOTERE [Suspect]
     Route: 041
     Dates: start: 20060203, end: 20060203
  3. GEMZAR [Concomitant]
     Indication: URETHRAL CANCER
     Route: 041
     Dates: start: 20060116, end: 20060116
  4. GEMZAR [Concomitant]
     Route: 041
     Dates: start: 20060203, end: 20060203
  5. KYTRIL [Concomitant]
     Indication: URETHRAL CANCER
     Route: 041
     Dates: start: 20060116, end: 20060116
  6. KYTRIL [Concomitant]
     Route: 041
     Dates: start: 20060203, end: 20060203
  7. DECADRON [Concomitant]
     Indication: URETHRAL CANCER
     Route: 041
     Dates: start: 20060116, end: 20060116
  8. DECADRON [Concomitant]
     Route: 041
     Dates: start: 20060203, end: 20060203
  9. RADIOTHERAPY [Concomitant]
     Indication: URETHRAL CANCER
     Dosage: DOSE: 39.6 GY IN TOTAL
     Dates: start: 20060320, end: 20060419

REACTIONS (1)
  - PANCREATITIS ACUTE [None]
